FAERS Safety Report 18383424 (Version 3)
Quarter: 2020Q4

REPORT INFORMATION
  Report Type: Report from Study
  Country: CA (occurrence: CA)
  Receive Date: 20201014
  Receipt Date: 20201124
  Transmission Date: 20210114
  Serious: Yes (Hospitalization)
  Sender: FDA-Public Use
  Company Number: CA-JNJFOC-20201015393

PATIENT
  Age: 72 Year
  Sex: Female
  Weight: 65.9 kg

DRUGS (1)
  1. SIMPONI [Suspect]
     Active Substance: GOLIMUMAB
     Indication: PSORIATIC ARTHROPATHY
     Route: 042

REACTIONS (9)
  - Pulmonary oedema [Unknown]
  - Product use issue [Unknown]
  - Arthropathy [Unknown]
  - Mammoplasty [Recovering/Resolving]
  - Pneumonia [Recovering/Resolving]
  - Post procedural haematoma [Recovering/Resolving]
  - Cardiac failure congestive [Recovering/Resolving]
  - Haemoglobin decreased [Unknown]
  - Off label use [Unknown]

NARRATIVE: CASE EVENT DATE: 2020
